FAERS Safety Report 5013535-8 (Version None)
Quarter: 2006Q2

REPORT INFORMATION
  Report Type: 
  Country: None (occurrence: None)
  Receive Date: 20060526
  Receipt Date: 20060526
  Transmission Date: 20061013
  Serious: No
  Sender: FDA-Public Use
  Company Number: None

PATIENT
  Age: 57 Year
  Sex: Female

DRUGS (1)
  1. NEORAL [Suspect]
     Dosage: SOLUTION

REACTIONS (4)
  - DRUG ADMINISTRATION ERROR [None]
  - DRUG TOXICITY [None]
  - MEDICATION ERROR [None]
  - OVERDOSE [None]
